FAERS Safety Report 9533658 (Version 1)
Quarter: 2013Q3

REPORT INFORMATION
  Report Type: Spontaneous
  Country: US (occurrence: US)
  Receive Date: 20130918
  Receipt Date: 20130918
  Transmission Date: 20140515
  Serious: No
  Sender: FDA-Public Use
  Company Number: US-PURDUE-USA-2011-0079198

PATIENT
  Age: 44 Year
  Sex: Male

DRUGS (1)
  1. BUTRANS [Suspect]
     Indication: BACK PAIN
     Dosage: 10 MCG, Q1H
     Route: 062
     Dates: start: 20111123

REACTIONS (5)
  - Pallor [Unknown]
  - Hyperhidrosis [Unknown]
  - Vomiting [Unknown]
  - Application site pruritus [Unknown]
  - Confusional state [Unknown]
